FAERS Safety Report 8159940-2 (Version None)
Quarter: 2012Q1

REPORT INFORMATION
  Report Type: 
  Country: None (occurrence: None)
  Receive Date: 20120223
  Receipt Date: 20120215
  Transmission Date: 20120608
  Serious: Yes (Hospitalization)
  Sender: FDA-Public Use
  Company Number: ES-GLAXOSMITHKLINE-B0783371A

PATIENT
  Sex: Male

DRUGS (1)
  1. OFATUMUMAB [Suspect]
     Indication: STEM CELL TRANSPLANT
     Route: 042
     Dates: start: 20111220

REACTIONS (1)
  - GRAFT VERSUS HOST DISEASE [None]
